FAERS Safety Report 9892227 (Version 2)
Quarter: 2014Q1

REPORT INFORMATION
  Report Type: Spontaneous
  Country: IN (occurrence: IN)
  Receive Date: 20140212
  Receipt Date: 20140218
  Transmission Date: 20141002
  Serious: Yes (Other)
  Sender: FDA-Public Use
  Company Number: IN-PFIZER INC-2014038497

PATIENT
  Age: 52 Year
  Sex: Female

DRUGS (4)
  1. ATENOLOL [Suspect]
     Indication: HYPERTENSION
     Dosage: 100 MG, 1X/DAY FOR LAST 3 WEEKS
     Route: 048
  2. METFORMIN HYDROCHLORIDE [Concomitant]
     Indication: TYPE 2 DIABETES MELLITUS
     Dosage: 1 G, 1X/DAY FOR LAST 7 YEARS
     Route: 048
  3. CALCIUM [Concomitant]
     Dosage: 500 MG, 1X/DAY FOR THE LAST 5 YEARS
     Route: 048
  4. LEVOTHYROXINE [Concomitant]
     Indication: HYPOTHYROIDISM
     Dosage: 100 UG, 1X/DAY FOR LAST 10 YEARS
     Route: 048

REACTIONS (1)
  - Drug-induced liver injury [Recovered/Resolved]
